FAERS Safety Report 17244307 (Version 3)
Quarter: 2020Q2

REPORT INFORMATION
  Report Type: Spontaneous
  Country: US (occurrence: US)
  Receive Date: 20200107
  Receipt Date: 20200424
  Transmission Date: 20200713
  Serious: Yes (Other)
  Sender: FDA-Public Use
  Company Number: US-GILEAD-2019-0444766

PATIENT
  Age: 46 Year
  Sex: Female

DRUGS (58)
  1. NYSTATIN. [Concomitant]
     Active Substance: NYSTATIN
  2. SULFADIAZINE. [Concomitant]
     Active Substance: SULFADIAZINE
  3. ALBUTEROL SULFATE. [Concomitant]
     Active Substance: ALBUTEROL SULFATE
  4. PROMETHAZINE [Concomitant]
     Active Substance: PROMETHAZINE HYDROCHLORIDE
  5. COMBIVENT [Concomitant]
     Active Substance: ALBUTEROL SULFATE\IPRATROPIUM BROMIDE
  6. NABUMETONE. [Concomitant]
     Active Substance: NABUMETONE
  7. CLINDAMYCIN. [Concomitant]
     Active Substance: CLINDAMYCIN
  8. TRAMADOL + ACETAMINOFEN [Concomitant]
     Active Substance: ACETAMINOPHEN\TRAMADOL
  9. HYDROCODONE BITARTRATE AND ACETAMINOPHEN [Concomitant]
     Active Substance: ACETAMINOPHEN\HYDROCODONE BITARTRATE
  10. DARAPRIM [Concomitant]
     Active Substance: PYRIMETHAMINE
  11. BUSPIRONE HCL [Concomitant]
     Active Substance: BUSPIRONE HYDROCHLORIDE
  12. BUTALB/ACET/CAFFEINE [Concomitant]
  13. IMIPRAMINE [Concomitant]
     Active Substance: IMIPRAMINE
  14. TRIUMEQ [Concomitant]
     Active Substance: ABACAVIR SULFATE\DOLUTEGRAVIR SODIUM\LAMIVUDINE
  15. NAPROXEN. [Concomitant]
     Active Substance: NAPROXEN
  16. PROAIR HFA [Concomitant]
     Active Substance: ALBUTEROL SULFATE
  17. PREDNISONE. [Concomitant]
     Active Substance: PREDNISONE
  18. TRUVADA [Suspect]
     Active Substance: EMTRICITABINE\TENOFOVIR DISOPROXIL FUMARATE
     Indication: HIV INFECTION
     Dosage: UNK
     Route: 048
     Dates: start: 200901, end: 201501
  19. PROCRIT [Concomitant]
     Active Substance: ERYTHROPOIETIN
  20. REYATAZ [Concomitant]
     Active Substance: ATAZANAVIR SULFATE
  21. FERROUS SULFATE. [Concomitant]
     Active Substance: FERROUS SULFATE
  22. LORAZEPAM. [Concomitant]
     Active Substance: LORAZEPAM
  23. FAMOTIDINE. [Concomitant]
     Active Substance: FAMOTIDINE
  24. CYCLOBENZAPRINE. [Concomitant]
     Active Substance: CYCLOBENZAPRINE
  25. POLYSACCHARIDE IRON [Concomitant]
  26. INSULIN [Concomitant]
     Active Substance: INSULIN NOS
  27. SULFAMETHOXAZOLE AND TRIMETHOPRIM [Concomitant]
     Active Substance: SULFAMETHOXAZOLE\TRIMETHOPRIM
  28. SERVAMOX CLV [Concomitant]
  29. CYANOCOBALAMIN. [Concomitant]
     Active Substance: CYANOCOBALAMIN
  30. PYLERA [Concomitant]
     Active Substance: BISMUTH SUBCITRATE POTASSIUM\METRONIDAZOLE\TETRACYCLINE HYDROCHLORIDE
  31. LEVETIRACETAM. [Concomitant]
     Active Substance: LEVETIRACETAM
  32. ALPRAZOLAM. [Concomitant]
     Active Substance: ALPRAZOLAM
  33. ACYCLOVIR [ACICLOVIR] [Concomitant]
     Active Substance: ACYCLOVIR
  34. CELEBREX [Concomitant]
     Active Substance: CELECOXIB
  35. DOXYCYCLINE. [Concomitant]
     Active Substance: DOXYCYCLINE
  36. GUAIFENESIN + CODEINE [Concomitant]
  37. AZITHROMYCIN ANHYDROUS. [Concomitant]
     Active Substance: AZITHROMYCIN ANHYDROUS
  38. PANTOPRAZOLE SODIUM. [Concomitant]
     Active Substance: PANTOPRAZOLE SODIUM
  39. ATRIPLA [Suspect]
     Active Substance: EFAVIRENZ\EMTRICITABINE\TENOFOVIR DISOPROXIL FUMARATE
     Indication: HIV INFECTION
     Dosage: UNK
     Route: 048
     Dates: start: 200601, end: 200701
  40. LEUCOVORIN CALCIUM. [Concomitant]
     Active Substance: LEUCOVORIN CALCIUM
  41. OXYCODONE HYDROCHLORIDE. [Concomitant]
     Active Substance: OXYCODONE HYDROCHLORIDE
  42. NORVIR [Concomitant]
     Active Substance: RITONAVIR
  43. VOLTAREN [DICLOFENAC] [Concomitant]
     Active Substance: DICLOFENAC SODIUM
  44. METHOCARBAMOL. [Concomitant]
     Active Substance: METHOCARBAMOL
  45. ONDANSETRON [Concomitant]
     Active Substance: ONDANSETRON
  46. GENVOYA [Concomitant]
     Active Substance: COBICISTAT\ELVITEGRAVIR\EMTRICITABINE\TENOFOVIR ALAFENAMIDE FUMARATE
  47. ISENTRESS [Concomitant]
     Active Substance: RALTEGRAVIR POTASSIUM
  48. PROVENTIL HFA [Concomitant]
     Active Substance: ALBUTEROL SULFATE
  49. MORPHINE SULF [Concomitant]
     Active Substance: MORPHINE SULFATE
  50. LIDODERM [Concomitant]
     Active Substance: LIDOCAINE
  51. METHADONE HCL [Concomitant]
     Active Substance: METHADONE HYDROCHLORIDE
  52. OXAPROZIN. [Concomitant]
     Active Substance: OXAPROZIN
  53. MELOXICAM. [Concomitant]
     Active Substance: MELOXICAM
  54. METRONIDAZOLE. [Concomitant]
     Active Substance: METRONIDAZOLE
  55. VITAMIN D2 [Concomitant]
     Active Substance: ERGOCALCIFEROL
  56. GABAPENTIN. [Concomitant]
     Active Substance: GABAPENTIN
  57. VENLAFAXINE HCL [Concomitant]
     Active Substance: VENLAFAXINE HYDROCHLORIDE
  58. CLARITHROMYCIN. [Concomitant]
     Active Substance: CLARITHROMYCIN

REACTIONS (8)
  - Anhedonia [Unknown]
  - Osteoporosis [Recovered/Resolved]
  - Tooth loss [Recovered/Resolved]
  - Economic problem [Unknown]
  - Bone density decreased [Unknown]
  - Emotional distress [Unknown]
  - Anxiety [Unknown]
  - Pain [Unknown]

NARRATIVE: CASE EVENT DATE: 201601
